FAERS Safety Report 11743101 (Version 3)
Quarter: 2015Q4

REPORT INFORMATION
  Report Type: Spontaneous
  Country: CN (occurrence: CN)
  Receive Date: 20151116
  Receipt Date: 20151130
  Transmission Date: 20160304
  Serious: Yes (Death, Hospitalization)
  Sender: FDA-Public Use
  Company Number: CN-SA-2015SA177658

PATIENT
  Age: 81 Year
  Sex: Female

DRUGS (5)
  1. PLAVIX [Suspect]
     Active Substance: CLOPIDOGREL BISULFATE
     Route: 048
     Dates: start: 20151015, end: 20151109
  2. PANTOPRAZOLE [Interacting]
     Active Substance: PANTOPRAZOLE SODIUM
     Route: 048
     Dates: end: 20151109
  3. AMIODARONE [Concomitant]
     Active Substance: AMIODARONE
     Indication: ACUTE MYOCARDIAL INFARCTION
     Dosage: 1.8G-0.6G,MICRO PUMP
     Dates: start: 20151027, end: 20151101
  4. AMIODARONE [Concomitant]
     Active Substance: AMIODARONE
     Indication: ARRHYTHMIA
     Dosage: 1.8G-0.6G,MICRO PUMP
     Dates: start: 20151027, end: 20151101
  5. VORICONAZOLE. [Interacting]
     Active Substance: VORICONAZOLE
     Indication: PULMONARY MYCOSIS
     Dosage: ROUTE: IV GTT
     Dates: start: 20151028, end: 20151031

REACTIONS (15)
  - Hepatomegaly [Unknown]
  - Arrhythmia [Unknown]
  - Splenomegaly [Unknown]
  - Left ventricular dysfunction [Fatal]
  - Liver injury [Unknown]
  - Drug interaction [Unknown]
  - Pyrexia [Unknown]
  - Cardiac failure [Fatal]
  - Alanine aminotransferase increased [Unknown]
  - Lung infection [Unknown]
  - Aspartate aminotransferase increased [Unknown]
  - Electrolyte imbalance [Unknown]
  - Left atrial dilatation [Fatal]
  - Respiratory failure [Fatal]
  - Asthenia [Unknown]

NARRATIVE: CASE EVENT DATE: 20151016
